FAERS Safety Report 13045573 (Version 1)
Quarter: 2016Q4

REPORT INFORMATION
  Report Type: Report from Study
  Country: BR (occurrence: BR)
  Receive Date: 20161220
  Receipt Date: 20161220
  Transmission Date: 20170207
  Serious: Yes (Hospitalization)
  Sender: FDA-Public Use
  Company Number: BR-BIOGEN-2016BI00332567

PATIENT
  Age: 68 Year
  Sex: Female

DRUGS (1)
  1. TYSABRI [Suspect]
     Active Substance: NATALIZUMAB
     Indication: MULTIPLE SCLEROSIS
     Route: 042
     Dates: start: 201607

REACTIONS (4)
  - Fatigue [Unknown]
  - Lung disorder [Unknown]
  - Urinary tract infection [Unknown]
  - Lung infiltration [Unknown]

NARRATIVE: CASE EVENT DATE: 201609
